FAERS Safety Report 8800807 (Version 1)
Quarter: 2012Q4

REPORT INFORMATION
  Report Type: 
  Country: US (occurrence: US)
  Receive Date: 20120921
  Receipt Date: 20120921
  Transmission Date: 20130627
  Serious: Yes (Other)
  Sender: FDA-Public Use
  Company Number: US-PFIZER INC-2012233788

PATIENT
  Age: 62 Year
  Sex: Male

DRUGS (3)
  1. ZOLOFT [Suspect]
     Dosage: Unk
  2. AMBIEN [Concomitant]
     Dosage: UNK
  3. XANAX [Concomitant]
     Dosage: UNK

REACTIONS (5)
  - Convulsion [Unknown]
  - Prostate cancer [Unknown]
  - Depression [Unknown]
  - Weight increased [Unknown]
  - Alcohol use [Unknown]
